FAERS Safety Report 8010919-0 (Version None)
Quarter: 2011Q4

REPORT INFORMATION
  Report Type: 
  Country: None (occurrence: None)
  Receive Date: 20111222
  Receipt Date: 20111214
  Transmission Date: 20120403
  Serious: Yes (Death, Life-Threatening, Other)
  Sender: FDA-Public Use
  Company Number: 2011MA017690

PATIENT

DRUGS (1)
  1. DIAZEPAM [Suspect]
     Indication: STATUS EPILEPTICUS
     Dosage: IV
     Route: 042

REACTIONS (15)
  - PULMONARY EMBOLISM [None]
  - AMMONIA INCREASED [None]
  - OXYGEN SATURATION DECREASED [None]
  - BONE MARROW FAILURE [None]
  - PNEUMOTHORAX [None]
  - BLOOD PRESSURE SYSTOLIC DECREASED [None]
  - ARRHYTHMIA [None]
  - HEART RATE DECREASED [None]
  - LIVER DISORDER [None]
  - ALANINE AMINOTRANSFERASE INCREASED [None]
  - LOSS OF CONSCIOUSNESS [None]
  - BLOOD BILIRUBIN INCREASED [None]
  - COAGULOPATHY [None]
  - SEDATION [None]
  - RESPIRATORY DEPRESSION [None]
